FAERS Safety Report 5696210-6 (Version None)
Quarter: 2008Q2

REPORT INFORMATION
  Report Type: 
  Country: None (occurrence: None)
  Receive Date: 20080404
  Receipt Date: 20080404
  Transmission Date: 20081010
  Serious: Yes (Disabling)
  Sender: FDA-Public Use
  Company Number: None

PATIENT
  Age: 59 Year
  Sex: Male
  Weight: 89 kg

DRUGS (2)
  1. PLAVIX [Suspect]
     Dosage: 75MG DAILY PO
     Route: 048
  2. ASPIRIN [Suspect]
     Dosage: 81MG DAILY PO
     Route: 048

REACTIONS (6)
  - ASTHENIA [None]
  - DUODENAL ULCER HAEMORRHAGE [None]
  - FAECES DISCOLOURED [None]
  - HAEMATOCRIT DECREASED [None]
  - HAEMOGLOBIN DECREASED [None]
  - LOSS OF CONSCIOUSNESS [None]
